FAERS Safety Report 19727665 (Version 1)
Quarter: 2021Q3

REPORT INFORMATION
  Report Type: Other
  Country: US (occurrence: US)
  Receive Date: 20210819
  Receipt Date: 20210819
  Transmission Date: 20211014
  Serious: Yes (Other)
  Sender: FDA-Public Use
  Company Number: US-ROCHE-2564007

PATIENT
  Age: 56 Year
  Sex: Female
  Weight: 99.88 kg

DRUGS (12)
  1. CITALOPRAM [Concomitant]
     Active Substance: CITALOPRAM HYDROBROMIDE
     Route: 048
  2. FUROSEMIDE. [Concomitant]
     Active Substance: FUROSEMIDE
     Route: 048
  3. LISINOPRIL. [Concomitant]
     Active Substance: LISINOPRIL
     Indication: HYPERTENSION
     Route: 048
  4. GABAPENTIN. [Concomitant]
     Active Substance: GABAPENTIN
     Indication: NEURALGIA
     Route: 048
     Dates: start: 2016
  5. SINGULAIR [Concomitant]
     Active Substance: MONTELUKAST SODIUM
     Route: 048
     Dates: start: 2017
  6. BACLOFEN. [Concomitant]
     Active Substance: BACLOFEN
     Indication: MUSCLE SPASMS
     Dosage: 1.5 TABLETS PER DOSE
     Route: 048
     Dates: start: 2016
  7. BACLOFEN. [Concomitant]
     Active Substance: BACLOFEN
     Indication: MUSCLE SPASTICITY
  8. L?METHYLFOLATE [Concomitant]
     Active Substance: LEVOMEFOLIC ACID
     Indication: METHYLENETETRAHYDROFOLATE REDUCTASE GENE MUTATION
     Route: 048
  9. OCREVUS [Suspect]
     Active Substance: OCRELIZUMAB
     Indication: MULTIPLE SCLEROSIS
     Route: 042
     Dates: start: 2017
  10. BIOTIN [Concomitant]
     Active Substance: BIOTIN
     Indication: ALOPECIA
     Route: 048
     Dates: start: 2017
  11. DALFAMPRIDINE. [Concomitant]
     Active Substance: DALFAMPRIDINE
     Dosage: 10MG ER TWICE DAILY
     Route: 048
     Dates: start: 2019
  12. CLINDAMYCIN. [Concomitant]
     Active Substance: CLINDAMYCIN
     Dosage: APPLY TO FACE OR ANYWHERE ALLERGY IS
     Route: 061

REACTIONS (11)
  - Weight increased [Unknown]
  - Multiple sclerosis relapse [Recovered/Resolved]
  - Infection [Unknown]
  - Drug hypersensitivity [Not Recovered/Not Resolved]
  - Alopecia [Not Recovered/Not Resolved]
  - Inappropriate schedule of product administration [Unknown]
  - Tooth fracture [Recovered/Resolved]
  - COVID-19 pneumonia [Recovered/Resolved]
  - JC polyomavirus test positive [Unknown]
  - Contusion [Recovered/Resolved]
  - Fatigue [Unknown]

NARRATIVE: CASE EVENT DATE: 2018
